FAERS Safety Report 21355345 (Version 1)
Quarter: 2022Q3

REPORT INFORMATION
  Report Type: Spontaneous
  Country: AT (occurrence: AT)
  Receive Date: 20220920
  Receipt Date: 20220920
  Transmission Date: 20221027
  Serious: Yes (Other)
  Sender: FDA-Public Use
  Company Number: AT-INCYTE CORPORATION-2022IN007425

PATIENT

DRUGS (1)
  1. PEMAZYRE [Suspect]
     Active Substance: PEMIGATINIB
     Indication: Cholangiocarcinoma
     Dosage: 13.5 MILLIGRAM, DAY 1-14 EVERY 3 WEEKS
     Route: 065
     Dates: start: 20220120, end: 20220616

REACTIONS (2)
  - Hepatic neoplasm [Not Recovered/Not Resolved]
  - Therapy partial responder [Unknown]
